FAERS Safety Report 15491594 (Version 4)
Quarter: 2019Q1

REPORT INFORMATION
  Report Type: Report from Study
  Country: CA (occurrence: CA)
  Receive Date: 20181012
  Receipt Date: 20190121
  Transmission Date: 20190417
  Serious: Yes (Other)
  Sender: FDA-Public Use
  Company Number: CA-ROCHE-2178203

PATIENT
  Age: 76 Year
  Sex: Female

DRUGS (2)
  1. TYLENOL [Concomitant]
     Active Substance: ACETAMINOPHEN
     Indication: PAIN
  2. TECENTRIQ [Suspect]
     Active Substance: ATEZOLIZUMAB
     Indication: LUNG NEOPLASM MALIGNANT
     Dosage: 60 MG/ML
     Route: 042
     Dates: start: 20180622

REACTIONS (8)
  - Dry mouth [Not Recovered/Not Resolved]
  - Fatigue [Not Recovered/Not Resolved]
  - Nasopharyngitis [Recovered/Resolved]
  - Fatigue [Unknown]
  - Fatigue [Recovered/Resolved]
  - Breast mass [Unknown]
  - Somnolence [Unknown]
  - Anxiety [Unknown]

NARRATIVE: CASE EVENT DATE: 20180824
